FAERS Safety Report 5282123-0 (Version None)
Quarter: 2007Q1

REPORT INFORMATION
  Report Type: 
  Country: None (occurrence: None)
  Receive Date: 20070330
  Receipt Date: 20070320
  Transmission Date: 20070707
  Serious: Yes (Hospitalization, Other)
  Sender: FDA-Public Use
  Company Number: US-PFIZER INC-2006136292

PATIENT
  Sex: Female

DRUGS (2)
  1. CELEBREX [Suspect]
     Indication: PAIN MANAGEMENT
     Route: 048
     Dates: start: 20030520, end: 20030701
  2. VIOXX [Suspect]
     Route: 048

REACTIONS (2)
  - ANXIETY [None]
  - CARDIOVASCULAR DISORDER [None]
